FAERS Safety Report 6328173-4 (Version None)
Quarter: 2009Q3

REPORT INFORMATION
  Report Type: 
  Country: None (occurrence: None)
  Receive Date: 20090825
  Receipt Date: 20090112
  Transmission Date: 20100115
  Serious: No
  Sender: FDA-Public Use
  Company Number: US-ABBOTT-09P-163-0497481-00

PATIENT
  Sex: Female
  Weight: 3.836 kg

DRUGS (5)
  1. SYNTHROID [Suspect]
     Indication: HYPERTHYROIDISM
     Dates: start: 20080101
  2. STARLIX [Concomitant]
     Indication: DIABETES MELLITUS
     Dates: start: 20070601
  3. LEVEMIR [Concomitant]
     Indication: PROPHYLACTIC CHEMOTHERAPY
     Dosage: 25U THE DAY OF CHEMO AND 12U THE DAY AFTER CHEMO
  4. CORTISONE [Concomitant]
     Indication: PROPHYLACTIC CHEMOTHERAPY
     Dosage: TAKES WITH CHEMO
     Dates: start: 20080701
  5. TORISEL [Concomitant]
     Indication: RENAL CELL CARCINOMA
     Route: 042
     Dates: start: 20080701

REACTIONS (1)
  - BLOOD GLUCOSE INCREASED [None]
